FAERS Safety Report 7564080-7 (Version None)
Quarter: 2011Q2

REPORT INFORMATION
  Report Type: 
  Country: None (occurrence: None)
  Receive Date: 20110622
  Receipt Date: 20110614
  Transmission Date: 20111010
  Serious: Yes (Other)
  Sender: FDA-Public Use
  Company Number: US-GILEAD-2011-0040757

PATIENT

DRUGS (1)
  1. ADEFOVIR DIPIVOXIL KIT [Suspect]
     Indication: HEPATITIS B

REACTIONS (2)
  - GENOTYPE DRUG RESISTANCE TEST POSITIVE [None]
  - VIRAL LOAD INCREASED [None]
